FAERS Safety Report 12315835 (Version 1)
Quarter: 2016Q2

REPORT INFORMATION
  Report Type: Spontaneous
  Country: US (occurrence: US)
  Receive Date: 20160428
  Receipt Date: 20160428
  Transmission Date: 20160815
  Serious: Yes (Death, Other)
  Sender: FDA-Public Use
  Company Number: US-UPSHER-SMITH LABORATORIES, INC.-16000745

PATIENT
  Age: 86 Year
  Sex: Male

DRUGS (2)
  1. NAMENDA [Suspect]
     Active Substance: MEMANTINE HYDROCHLORIDE
     Indication: DEMENTIA ALZHEIMER^S TYPE
     Dosage: 28 MG, QD
     Route: 048
     Dates: start: 2004
  2. JANTOVEN [Suspect]
     Active Substance: WARFARIN SODIUM
     Indication: ATRIAL FIBRILLATION
     Dosage: 13 MG, QD
     Route: 048

REACTIONS (4)
  - Sepsis [Recovered/Resolved]
  - Haemorrhagic stroke [Recovered/Resolved]
  - Infection [Fatal]
  - Wound [Not Recovered/Not Resolved]

NARRATIVE: CASE EVENT DATE: 201512
